FAERS Safety Report 4272215-7 (Version None)
Quarter: 2004Q1

REPORT INFORMATION
  Report Type: 
  Country: None (occurrence: None)
  Receive Date: 20040115
  Receipt Date: 20031112
  Transmission Date: 20041129
  Serious: Yes (Life-Threatening)
  Sender: FDA-Public Use
  Company Number: JP-BRISTOL-MYERS SQUIBB COMPANY-12434635

PATIENT
  Age: 60 Year
  Sex: Male

DRUGS (8)
  1. MITOMYCIN [Suspect]
     Indication: ANAL CANCER
     Route: 042
     Dates: start: 20030312, end: 20030723
  2. FLUOROURACIL [Concomitant]
     Dates: start: 20030312, end: 20030623
  3. UFT [Concomitant]
     Route: 048
     Dates: start: 20030312, end: 20030623
  4. GASTER [Concomitant]
     Route: 048
     Dates: start: 20030108
  5. UBRETID [Concomitant]
     Route: 048
     Dates: start: 20030108
  6. DORAL [Concomitant]
     Route: 048
     Dates: start: 20030108
  7. LYSOZYME CHLORIDE [Concomitant]
     Route: 048
     Dates: start: 20030108
  8. MAGNESIUM OXIDE [Concomitant]
     Route: 048
     Dates: start: 20030108

REACTIONS (3)
  - INTERSTITIAL LUNG DISEASE [None]
  - PLATELET COUNT DECREASED [None]
  - PLEURAL EFFUSION [None]
